FAERS Safety Report 10086264 (Version 1)
Quarter: 2014Q2

REPORT INFORMATION
  Report Type: Spontaneous
  Country: US (occurrence: US)
  Receive Date: 20140418
  Receipt Date: 20140418
  Transmission Date: 20141212
  Serious: No
  Sender: FDA-Public Use
  Company Number: US-ENDO PHARMACEUTICALS INC.-DIAZ20130003

PATIENT
  Sex: Female

DRUGS (3)
  1. DIAZEPAM 5MG [Suspect]
     Indication: BACK PAIN
     Dosage: 5 MG
     Route: 048
     Dates: start: 20130501, end: 20130501
  2. DIAZEPAM 5MG [Suspect]
     Dosage: 5 MG
     Route: 048
     Dates: start: 20130504, end: 20130504
  3. DIAZEPAM 5MG [Suspect]
     Dosage: 5 MG
     Route: 048
     Dates: start: 2013, end: 2013

REACTIONS (4)
  - Feeling abnormal [Recovered/Resolved]
  - Hypokinesia [Recovered/Resolved]
  - Depressed level of consciousness [Recovered/Resolved]
  - Somnolence [Recovered/Resolved]
